FAERS Safety Report 6142995-4 (Version None)
Quarter: 2009Q2

REPORT INFORMATION
  Report Type: 
  Country: None (occurrence: None)
  Receive Date: 20090403
  Receipt Date: 20090326
  Transmission Date: 20091009
  Serious: Yes (Other)
  Sender: FDA-Public Use
  Company Number: GB-ROCHE-624540

PATIENT
  Sex: Female
  Weight: 74.9 kg

DRUGS (2)
  1. ORLISTAT [Suspect]
     Indication: OBESITY
     Route: 048
     Dates: start: 20090227
  2. METFORMIN HCL [Concomitant]
     Route: 048
     Dates: start: 19800101

REACTIONS (2)
  - HYPOTHYROIDISM [None]
  - THYROID DISORDER [None]
